FAERS Safety Report 6183373-1 (Version None)
Quarter: 2009Q2

REPORT INFORMATION
  Report Type: 
  Country: None (occurrence: None)
  Receive Date: 20090506
  Receipt Date: 20090429
  Transmission Date: 20091009
  Serious: Yes (Hospitalization)
  Sender: FDA-Public Use
  Company Number: VISP-NO-0901S-0030

PATIENT
  Age: 54 Year
  Sex: Male
  Weight: 94 kg

DRUGS (2)
  1. VISIPAQUE [Suspect]
     Indication: ANGINA PECTORIS
     Dosage: 200 ML, SINGLE DOSE, I.V.
     Route: 042
     Dates: start: 20090119, end: 20090119
  2. VISIPAQUE [Suspect]

REACTIONS (7)
  - BLOOD PRESSURE INCREASED [None]
  - BODY TEMPERATURE INCREASED [None]
  - CHILLS [None]
  - HEADACHE [None]
  - HEART RATE INCREASED [None]
  - NAUSEA [None]
  - VOMITING [None]
